FAERS Safety Report 6600451-0 (Version None)
Quarter: 2010Q1

REPORT INFORMATION
  Report Type: 
  Country: None (occurrence: None)
  Receive Date: 20100223
  Receipt Date: 20100223
  Transmission Date: 20100710
  Serious: Yes (Life-Threatening)
  Sender: FDA-Public Use
  Company Number: None

PATIENT
  Sex: Female
  Weight: 83.9154 kg

DRUGS (2)
  1. COMBIVENT [Suspect]
     Indication: BRONCHIAL HYPERREACTIVITY
     Dosage: INHALE AS NEEDED FOR WHEEZING INHAL
     Route: 055
     Dates: start: 20091015, end: 20100202
  2. COMBIVENT [Suspect]
     Indication: BRONCHITIS
     Dosage: INHALE AS NEEDED FOR WHEEZING INHAL
     Route: 055
     Dates: start: 20091015, end: 20100202

REACTIONS (3)
  - BLOOD PRESSURE INCREASED [None]
  - PALPITATIONS [None]
  - VENTRICULAR TACHYCARDIA [None]
